FAERS Safety Report 10051134 (Version 1)
Quarter: 2014Q2

REPORT INFORMATION
  Report Type: Spontaneous
  Country: US (occurrence: US)
  Receive Date: 20140401
  Receipt Date: 20140401
  Transmission Date: 20141212
  Serious: No
  Sender: FDA-Public Use
  Company Number: US-ASTRAZENECA-2013SE50216

PATIENT
  Age: 46 Year
  Sex: Female
  Weight: 65.8 kg

DRUGS (3)
  1. LEXAPRO [Concomitant]
     Route: 048
     Dates: start: 200304
  2. NEXIUM [Suspect]
     Indication: GASTROOESOPHAGEAL REFLUX DISEASE
     Route: 048
     Dates: start: 201305, end: 201306
  3. OMEPRAZOLE [Suspect]
     Indication: GASTROOESOPHAGEAL REFLUX DISEASE
     Route: 048
     Dates: start: 201304, end: 201305

REACTIONS (2)
  - Abdominal pain [Not Recovered/Not Resolved]
  - Drug dose omission [Not Recovered/Not Resolved]
